FAERS Safety Report 4403165-0 (Version None)
Quarter: 2004Q3

REPORT INFORMATION
  Report Type: 
  Country: None (occurrence: None)
  Receive Date: 20040721
  Receipt Date: 20040524
  Transmission Date: 20050211
  Serious: Yes (Other)
  Sender: FDA-Public Use
  Company Number: US-GLAXOSMITHKLINE-A0512345A

PATIENT
  Age: 52 Year
  Sex: Female

DRUGS (26)
  1. IMITREX [Suspect]
     Indication: HEADACHE
     Route: 048
     Dates: start: 19970424
  2. MORPHINE [Concomitant]
     Indication: HEADACHE
     Dates: start: 19970424, end: 19970424
  3. CYTOMEL [Concomitant]
  4. HYDROCORTISONE [Concomitant]
  5. PREMPRO [Concomitant]
  6. PRILOSEC [Concomitant]
  7. MICRO-K [Concomitant]
  8. PAXIL [Concomitant]
  9. PERCODAN [Concomitant]
  10. IRON [Concomitant]
  11. DANTRIUM [Concomitant]
  12. REGLAN [Concomitant]
  13. OXYCODONE HCL [Concomitant]
  14. FLORINEF [Concomitant]
  15. PROVERA [Concomitant]
  16. PREMARIN [Concomitant]
  17. MOBAN [Concomitant]
  18. KLONOPIN [Concomitant]
  19. SELDANE [Concomitant]
  20. ZANTAC [Concomitant]
  21. L-THYROXINE [Concomitant]
  22. FERROUS GLUCONATE [Concomitant]
  23. UNSPECIFIED MEDICATION [Concomitant]
  24. TRAZODONE HCL [Concomitant]
  25. BUTALBITAL [Concomitant]
  26. CYTOMEL [Concomitant]

REACTIONS (4)
  - CONVULSION [None]
  - DRUG INEFFECTIVE [None]
  - MUSCLE TWITCHING [None]
  - SUBARACHNOID HAEMORRHAGE [None]
